FAERS Safety Report 6874561-7 (Version None)
Quarter: 2010Q3

REPORT INFORMATION
  Report Type: 
  Country: None (occurrence: None)
  Receive Date: 20100722
  Receipt Date: 20100710
  Transmission Date: 20110219
  Serious: Yes (Death, Other)
  Sender: FDA-Public Use
  Company Number: MPS1-1000354

PATIENT
  Age: 14 Year
  Sex: Female

DRUGS (1)
  1. ALDURAZYME [Suspect]
     Indication: MUCOPOLYSACCHARIDOSIS I
     Dosage: 1.2 MG/KG, Q2W, INTRAVENOUS
     Route: 042
     Dates: start: 20050118, end: 20100701

REACTIONS (3)
  - APALLIC SYNDROME [None]
  - CARDIO-RESPIRATORY ARREST [None]
  - DRUG INEFFECTIVE [None]
